FAERS Safety Report 7910155-X (Version None)
Quarter: 2011Q4

REPORT INFORMATION
  Report Type: 
  Country: None (occurrence: None)
  Receive Date: 20111111
  Receipt Date: 20111105
  Transmission Date: 20120403
  Serious: Yes (Other)
  Sender: FDA-Public Use
  Company Number: US-ABBOTT-11P-163-0872643-00

PATIENT
  Sex: Female
  Weight: 88.53 kg

DRUGS (9)
  1. OXYCONTIN [Concomitant]
     Indication: ARTHRALGIA
     Dosage: 10/325, PRN
  2. RESTASIS [Concomitant]
     Indication: SJOGREN'S SYNDROME
     Dosage: 1 GTT DROP EACH EYE BID
     Route: 047
  3. METFORMIN HCL [Concomitant]
     Indication: GLUCOSE TOLERANCE IMPAIRED
  4. VITAMIN D [Concomitant]
     Indication: VITAMIN SUPPLEMENTATION
  5. HUMIRA [Suspect]
     Indication: PSORIATIC ARTHROPATHY
     Dates: start: 20060101, end: 20060101
  6. FOLIC ACID [Concomitant]
     Indication: VITAMIN SUPPLEMENTATION
  7. AMBIEN [Concomitant]
     Indication: INSOMNIA
     Dosage: AT BEDTIME
  8. MULTI-VITAMIN [Concomitant]
     Indication: VITAMIN SUPPLEMENTATION
     Dosage: DAILY
  9. ALPRAZOLAM [Concomitant]
     Indication: ANXIETY

REACTIONS (5)
  - PSORIASIS [None]
  - DRUG INEFFECTIVE [None]
  - GALLBLADDER DISORDER [None]
  - HAEMATOMA [None]
  - NEPHROLITHIASIS [None]
